FAERS Safety Report 23692711 (Version 1)
Quarter: 2024Q2

REPORT INFORMATION
  Report Type: Spontaneous
  Country: CN (occurrence: CN)
  Receive Date: 20240401
  Receipt Date: 20240401
  Transmission Date: 20240716
  Serious: Yes (Other)
  Sender: FDA-Public Use
  Company Number: CN-PFIZER INC-PV202400041549

PATIENT
  Age: 21 Year
  Sex: Female
  Weight: 50 kg

DRUGS (2)
  1. METHOTREXATE SODIUM [Suspect]
     Active Substance: METHOTREXATE SODIUM
     Indication: Abortion
     Dosage: 20 MG, 1X/DAY
     Route: 030
     Dates: start: 20240318, end: 20240323
  2. MIFEPRISTONE [Concomitant]
     Active Substance: MIFEPRISTONE
     Indication: Abortion
     Dosage: 50 MG, 2X/DAY
     Route: 048
     Dates: start: 20240318, end: 20240323

REACTIONS (6)
  - Transaminases increased [Unknown]
  - Rash [Unknown]
  - Oral pain [Unknown]
  - Mouth ulceration [Unknown]
  - Papule [Unknown]
  - Off label use [Unknown]

NARRATIVE: CASE EVENT DATE: 20240318
